FAERS Safety Report 9608566 (Version 1)
Quarter: 2013Q4

REPORT INFORMATION
  Report Type: Spontaneous
  Country: US (occurrence: US)
  Receive Date: 20131009
  Receipt Date: 20131009
  Transmission Date: 20140711
  Serious: Yes (Hospitalization, Disabling, Other)
  Sender: FDA-Public Use
  Company Number: US-ROXANE LABORATORIES, INC.-2013-RO-01620RO

PATIENT
  Age: 31 Year
  Sex: Male

DRUGS (5)
  1. METHADONE [Suspect]
     Indication: DRUG WITHDRAWAL MAINTENANCE THERAPY
     Dosage: 80 MG
  2. NALOXONE [Suspect]
     Indication: OVERDOSE
  3. FLUOXETINE [Concomitant]
  4. BENZODIAZEPINES [Concomitant]
  5. BARBITURATES [Concomitant]

REACTIONS (8)
  - Deafness neurosensory [Not Recovered/Not Resolved]
  - Overdose [Recovered/Resolved]
  - Respiratory acidosis [Recovered/Resolved]
  - Renal failure acute [Recovered/Resolved]
  - Atelectasis [Recovered/Resolved]
  - Urinary tract infection [Unknown]
  - Pneumonia aspiration [Unknown]
  - Cellulitis [Unknown]
